FAERS Safety Report 7535947-0 (Version None)
Quarter: 2011Q2

REPORT INFORMATION
  Report Type: 
  Country: None (occurrence: None)
  Receive Date: 20110607
  Receipt Date: 20110607
  Transmission Date: 20111010
  Serious: No
  Sender: FDA-Public Use
  Company Number: None

PATIENT
  Sex: Female
  Weight: 72.5755 kg

DRUGS (1)
  1. CIMZIA [Suspect]
     Indication: RHEUMATOID ARTHRITIS
     Dosage: 3 WEEKS SQ
     Route: 058
     Dates: start: 20100102, end: 20110410

REACTIONS (3)
  - PHARYNGEAL DISORDER [None]
  - OESOPHAGEAL DISORDER [None]
  - URTICARIA [None]
